FAERS Safety Report 12145425 (Version 2)
Quarter: 2017Q3

REPORT INFORMATION
  Report Type: Spontaneous
  Country: US (occurrence: US)
  Receive Date: 20160304
  Receipt Date: 20170908
  Transmission Date: 20171127
  Serious: No
  Sender: FDA-Public Use
  Company Number: US-ASTRAZENECA-2016SE19454

PATIENT
  Sex: Male

DRUGS (1)
  1. TUDORZA PRESSAIR [Suspect]
     Active Substance: ACLIDINIUM BROMIDE
     Dosage: 400 MCG ONE PUFF TWICE A DAY
     Route: 055

REACTIONS (3)
  - Intentional product use issue [Unknown]
  - Hypoacusis [Unknown]
  - Device malfunction [Unknown]
